FAERS Safety Report 8440190-7 (Version None)
Quarter: 2012Q2

REPORT INFORMATION
  Report Type: 
  Country: None (occurrence: None)
  Receive Date: 20120615
  Receipt Date: 20120531
  Transmission Date: 20120825
  Serious: Yes (Other)
  Sender: FDA-Public Use
  Company Number: US-ROCHE-1074301

PATIENT
  Sex: Female

DRUGS (2)
  1. ALLI [Suspect]
     Indication: PRODUCT USED FOR UNKNOWN INDICATION
  2. XENICAL [Suspect]
     Indication: PRODUCT USED FOR UNKNOWN INDICATION
     Route: 048
     Dates: start: 20020101

REACTIONS (13)
  - JAUNDICE [None]
  - GASTRIC INFECTION [None]
  - NAIL DISORDER [None]
  - GASTRIC DISORDER [None]
  - HELICOBACTER INFECTION [None]
  - OCULAR ICTERUS [None]
  - NAIL DISCOLOURATION [None]
  - MALABSORPTION [None]
  - SKIN DISORDER [None]
  - DYSPEPSIA [None]
  - HYPOVITAMINOSIS [None]
  - ILL-DEFINED DISORDER [None]
  - LIVER DISORDER [None]
